FAERS Safety Report 5120646-5 (Version None)
Quarter: 2006Q4

REPORT INFORMATION
  Report Type: 
  Country: None (occurrence: None)
  Receive Date: 20061004
  Receipt Date: 20060920
  Transmission Date: 20070319
  Serious: Yes (Hospitalization)
  Sender: FDA-Public Use
  Company Number: GB-ALLERGAN-0605350US

PATIENT
  Sex: Male

DRUGS (3)
  1. COMBIGAN[TM] [Suspect]
     Indication: INTRAOCULAR PRESSURE INCREASED
     Route: 047
  2. CHEMOTHERAPEUTICS NOS [Concomitant]
     Indication: CHEMOTHERAPY
  3. THERAPEUTIC RADIOPHARMACEUTICALS [Concomitant]
     Indication: RADIOTHERAPY

REACTIONS (2)
  - MALAISE [None]
  - TREMOR [None]
